FAERS Safety Report 4804891-1 (Version None)
Quarter: 2005Q4

REPORT INFORMATION
  Report Type: 
  Country: None (occurrence: None)
  Receive Date: 20051017
  Receipt Date: 20050926
  Transmission Date: 20060501
  Serious: Yes (Hospitalization)
  Sender: FDA-Public Use
  Company Number: AU_020404981

PATIENT
  Age: 10 Year
  Sex: Male
  Weight: 52 kg

DRUGS (8)
  1. ATOMOXETINE HYDROCHLORIDE [Suspect]
     Indication: ATTENTION DEFICIT/HYPERACTIVITY DISORDER
     Dosage: 45 MG/2 DAY
     Dates: start: 20020321
  2. DEXCHLORPHENIRAMINE MALEATE [Concomitant]
  3. CATAPRES [Concomitant]
  4. HUMALOG [Concomitant]
  5. HUMULIN N [Concomitant]
  6. DYMADON (PARACETAMOL) [Concomitant]
  7. SUDAFED 12 HOUR [Concomitant]
  8. ACETAMINOPHEN [Concomitant]

REACTIONS (15)
  - BLOOD BICARBONATE DECREASED [None]
  - BLOOD SODIUM DECREASED [None]
  - BODY TEMPERATURE INCREASED [None]
  - DEHYDRATION [None]
  - DIABETES MELLITUS INADEQUATE CONTROL [None]
  - DIARRHOEA [None]
  - GASTROENTERITIS [None]
  - GASTROINTESTINAL HAEMORRHAGE [None]
  - KETOACIDOSIS [None]
  - MALAISE [None]
  - NAUSEA [None]
  - OTITIS MEDIA [None]
  - SOCIAL PROBLEM [None]
  - VIRAL INFECTION [None]
  - VOMITING [None]
